FAERS Safety Report 5741238-0 (Version None)
Quarter: 2008Q2

REPORT INFORMATION
  Report Type: 
  Country: None (occurrence: None)
  Receive Date: 20080514
  Receipt Date: 20080430
  Transmission Date: 20081010
  Serious: Yes (Hospitalization)
  Sender: FDA-Public Use
  Company Number: 2008AL003027

PATIENT
  Sex: Male

DRUGS (6)
  1. DIGOXIN [Suspect]
  2. ISMO [Concomitant]
  3. NADOLOL [Concomitant]
  4. VERAPAMIL [Concomitant]
  5. DIOVAN [Concomitant]
  6. SYNTHROID [Concomitant]

REACTIONS (1)
  - ASTHENIA [None]
